FAERS Safety Report 19382073 (Version 2)
Quarter: 2021Q2

REPORT INFORMATION
  Report Type: Spontaneous
  Country: US (occurrence: US)
  Receive Date: 20210607
  Receipt Date: 20210607
  Transmission Date: 20210717
  Serious: No
  Sender: FDA-Public Use
  Company Number: US-PFIZER INC-2021254100

PATIENT
  Age: 73 Year
  Sex: Female

DRUGS (9)
  1. SPIRONOLACTONE. [Suspect]
     Active Substance: SPIRONOLACTONE
     Dosage: UNK
  2. HYDROCHLOROTHIAZIDE. [Suspect]
     Active Substance: HYDROCHLOROTHIAZIDE
     Dosage: UNK
  3. MICARDIS [Suspect]
     Active Substance: TELMISARTAN
     Dosage: UNK
  4. DEMEROL [Suspect]
     Active Substance: MEPERIDINE HYDROCHLORIDE
     Dosage: UNK
  5. CELECOXIBE [Suspect]
     Active Substance: CELECOXIB
     Dosage: UNK
  6. VIOXY [Suspect]
     Active Substance: MINERALS\VITAMINS
     Dosage: UNK
  7. MISOPROSTOL. [Suspect]
     Active Substance: MISOPROSTOL
     Dosage: UNK
  8. CARVEDILOL. [Suspect]
     Active Substance: CARVEDILOL
     Dosage: UNK
  9. LASIX [Suspect]
     Active Substance: FUROSEMIDE
     Dosage: UNK

REACTIONS (1)
  - Drug hypersensitivity [Unknown]
